FAERS Safety Report 8862770 (Version 1)
Quarter: 2012Q4

REPORT INFORMATION
  Report Type: 
  Country: US (occurrence: US)
  Receive Date: 20121026
  Receipt Date: 20121026
  Transmission Date: 20130627
  Serious: No
  Sender: FDA-Public Use
  Company Number: US-ALLERGAN-1207035US

PATIENT
  Age: 93 Year
  Sex: Female

DRUGS (8)
  1. ALPHAGAN P [Suspect]
     Indication: GLAUCOMA
     Dosage: 1 Gtt, q8hr
     Route: 047
     Dates: start: 201203, end: 20120618
  2. ALPHAGAN P [Suspect]
     Dosage: 1 Gtt, tid
     Route: 047
     Dates: start: 201203
  3. XALATAN                            /01297301/ [Concomitant]
     Indication: GLAUCOMA
     Dosage: 2 Gtt, qhs
     Route: 047
  4. PLAVIX                             /01220701/ [Concomitant]
     Indication: ANTICOAGULANT THERAPY
     Dosage: UNK
     Route: 048
  5. BABY ASA [Concomitant]
     Indication: DRUG USE FOR UNKNOWN INDICATION
     Dosage: UNK
     Route: 048
  6. BLUEBERRY EXTRACT [Concomitant]
     Indication: DRUG USE FOR UNKNOWN INDICATION
  7. BLOOD PRESSURE PILLS [Concomitant]
     Indication: DRUG USE FOR UNKNOWN INDICATION
     Dosage: UNK
  8. AVAPRO [Concomitant]
     Indication: DRUG USE FOR UNKNOWN INDICATION

REACTIONS (6)
  - Productive cough [Recovering/Resolving]
  - Increased upper airway secretion [Recovering/Resolving]
  - Sinus disorder [Not Recovered/Not Resolved]
  - Upper-airway cough syndrome [Not Recovered/Not Resolved]
  - Rhinorrhoea [Not Recovered/Not Resolved]
  - Nasal congestion [Not Recovered/Not Resolved]
